FAERS Safety Report 21770824 (Version 3)
Quarter: 2023Q1

REPORT INFORMATION
  Report Type: Report from Study
  Country: CN (occurrence: CN)
  Receive Date: 20221223
  Receipt Date: 20230216
  Transmission Date: 20230418
  Serious: Yes (Hospitalization)
  Sender: FDA-Public Use
  Company Number: CN-TAKEDA-2022TUS098449

PATIENT
  Age: 60 Year
  Sex: Male
  Weight: 58 kg

DRUGS (7)
  1. IXAZOMIB [Suspect]
     Active Substance: IXAZOMIB
     Indication: Plasma cell myeloma
     Dosage: 3 MILLIGRAM
     Route: 048
     Dates: start: 20221101
  2. FOLIC ACID [Concomitant]
     Active Substance: FOLIC ACID
     Indication: Prophylaxis
     Dosage: 5 MILLIGRAM, TID
     Route: 048
     Dates: start: 20221031
  3. METHYLCOBALAMIN [Concomitant]
     Active Substance: METHYLCOBALAMIN
     Indication: Prophylaxis
     Dosage: 0.5 MILLIGRAM, TID
     Route: 048
     Dates: start: 20221031
  4. FUROSEMIDE [Concomitant]
     Active Substance: FUROSEMIDE
     Indication: Venous thrombosis
     Dosage: 20 MILLIGRAM, QD
     Route: 048
     Dates: start: 20221031
  5. CALTRATE [Concomitant]
     Active Substance: CALCIUM CARBONATE
     Indication: Prophylaxis
     Dosage: 0.6 GRAM, QD
     Route: 048
     Dates: start: 20221031
  6. ACYCLOVIR [Concomitant]
     Active Substance: ACYCLOVIR
     Indication: Prophylaxis
     Dosage: 0.4 GRAM, QD
     Route: 048
     Dates: start: 20221031
  7. RIVAROXABAN [Concomitant]
     Active Substance: RIVAROXABAN
     Indication: Venous thrombosis
     Dosage: 10 MILLIGRAM, QD
     Route: 048
     Dates: start: 20221031

REACTIONS (2)
  - Hypoproteinaemia [Recovered/Resolved]
  - COVID-19 [Recovered/Resolved]

NARRATIVE: CASE EVENT DATE: 20221214
